FAERS Safety Report 23880730 (Version 1)
Quarter: 2024Q2

REPORT INFORMATION
  Report Type: Spontaneous
  Country: ZA (occurrence: None)
  Receive Date: 20240521
  Receipt Date: 20240521
  Transmission Date: 20240716
  Serious: Yes (Hospitalization)
  Sender: FDA-Public Use
  Company Number: 2024A113461

PATIENT
  Age: 30681 Day
  Sex: Female

DRUGS (8)
  1. BUDESONIDE\FORMOTEROL [Suspect]
     Active Substance: BUDESONIDE\FORMOTEROL
     Indication: Asthma
     Dosage: 120 UG/INHAL, UNKNOWN UNKNOWN
     Route: 055
  2. LEVOTHYROXINE [Concomitant]
     Active Substance: LEVOTHYROXINE\LEVOTHYROXINE SODIUM
     Indication: Product used for unknown indication
     Route: 048
  3. MYLAN DICLOFENAC SODIUM [Concomitant]
     Indication: Pain
     Route: 048
  4. VENTEZE CFC FREE [Concomitant]
     Indication: Bronchospasm
     Dosage: 100 UG/INHAL
     Route: 055
  5. LIPOGEN [Concomitant]
     Indication: Blood cholesterol
     Route: 048
  6. HYDROCHLOROTHIAZIDE\LOSARTAN POTASSIUM [Concomitant]
     Active Substance: HYDROCHLOROTHIAZIDE\LOSARTAN POTASSIUM
     Indication: Hypertension
     Dosage: 12.5 UG
     Route: 048
  7. SERDEP [Concomitant]
     Indication: Psychiatric investigation
     Route: 048
  8. CLOBAZAM [Concomitant]
     Active Substance: CLOBAZAM
     Indication: Anxiety

REACTIONS (1)
  - Loss of consciousness [Unknown]
